FAERS Safety Report 25903253 (Version 1)
Quarter: 2025Q4

REPORT INFORMATION
  Report Type: Spontaneous
  Country: MX (occurrence: MX)
  Receive Date: 20251009
  Receipt Date: 20251009
  Transmission Date: 20260117
  Serious: Yes (Other)
  Sender: ELI LILLY AND COMPANY
  Company Number: MX-ELI_LILLY_AND_COMPANY-MX202510002232

PATIENT
  Age: 51 Year
  Sex: Female

DRUGS (2)
  1. VERZENIO [Suspect]
     Active Substance: ABEMACICLIB
     Indication: Breast cancer
     Dosage: 150 MG, BID
     Route: 065
     Dates: start: 20250521, end: 20250909
  2. VERZENIO [Suspect]
     Active Substance: ABEMACICLIB
     Dosage: 100 MG, BID
     Route: 065
     Dates: start: 20250910

REACTIONS (1)
  - Toxicity to various agents [Unknown]
